FAERS Safety Report 6235706-5 (Version None)
Quarter: 2009Q2

REPORT INFORMATION
  Report Type: 
  Country: None (occurrence: None)
  Receive Date: 20090616
  Receipt Date: 20090601
  Transmission Date: 20091009
  Serious: Yes (Hospitalization)
  Sender: FDA-Public Use
  Company Number: 2009-198202-NL

PATIENT
  Sex: Female
  Weight: 2.19 kg

DRUGS (14)
  1. REMERON [Suspect]
     Indication: ANXIETY
     Dosage: 15 MG DAILY TRANSPLACENTAL
     Route: 064
     Dates: start: 20081009, end: 20090505
  2. REMERON [Suspect]
     Indication: DEPRESSION
     Dosage: 15 MG DAILY TRANSPLACENTAL
     Route: 064
     Dates: start: 20081009, end: 20090505
  3. SUBUTEX [Suspect]
     Indication: DRUG DEPENDENCE
     Dosage: 8 MG DAILY TRANSPLACENTAL
     Route: 064
     Dates: start: 20081003, end: 20090505
  4. WELLBUTRIN [Suspect]
     Indication: ANXIETY
     Dosage: 150 MG DAILY TRANSPLACENTAL
     Route: 064
     Dates: start: 20080812, end: 20090505
  5. WELLBUTRIN [Suspect]
     Indication: DEPRESSION
     Dosage: 150 MG DAILY TRANSPLACENTAL
     Route: 064
     Dates: start: 20080812, end: 20090505
  6. NITROFURANTOIN [Concomitant]
  7. NICOTINE POLACRILEX [Concomitant]
  8. PHENAZOPYRIDINE HCL TAB [Concomitant]
  9. VITAMIN TAB [Concomitant]
  10. CALCIUM ^SANDOZ^ [Concomitant]
  11. PROMETHAZINE [Concomitant]
  12. COLACE [Concomitant]
  13. GLYCERIN [Concomitant]
  14. METAMUCIL ^SEARLE^ [Concomitant]

REACTIONS (4)
  - DRUG WITHDRAWAL SYNDROME NEONATAL [None]
  - FOETAL GROWTH RETARDATION [None]
  - HERPES VIRUS INFECTION [None]
  - MATERNAL DRUGS AFFECTING FOETUS [None]
